FAERS Safety Report 6694514-1 (Version None)
Quarter: 2010Q2

REPORT INFORMATION
  Report Type: 
  Country: None (occurrence: None)
  Receive Date: 20100423
  Receipt Date: 20100412
  Transmission Date: 20101027
  Serious: Yes (Other)
  Sender: FDA-Public Use
  Company Number: CA-JNJFOC-20100403980

PATIENT
  Sex: Female
  Weight: 72 kg

DRUGS (2)
  1. REMICADE [Suspect]
     Indication: CROHN'S DISEASE
     Route: 042
  2. LOSEC I.V. [Concomitant]
     Route: 048

REACTIONS (1)
  - HERPES ZOSTER [None]
